FAERS Safety Report 10253276 (Version 1)
Quarter: 2014Q2

REPORT INFORMATION
  Report Type: Spontaneous
  Country: US (occurrence: US)
  Receive Date: 20140623
  Receipt Date: 20140623
  Transmission Date: 20141212
  Serious: No
  Sender: FDA-Public Use
  Company Number: US-SHIONOGI, INC-2014000124

PATIENT
  Sex: 0

DRUGS (2)
  1. OSPHENA [Suspect]
     Indication: DYSPAREUNIA
     Dosage: UNK
     Route: 065
     Dates: start: 20140206, end: 20140220
  2. PREMPRO [Concomitant]
     Indication: HOT FLUSH
     Dosage: UNK
     Route: 065

REACTIONS (2)
  - Labelled drug-drug interaction medication error [Unknown]
  - Hot flush [Unknown]
